FAERS Safety Report 16281668 (Version 1)
Quarter: 2019Q2

REPORT INFORMATION
  Report Type: Spontaneous
  Country: US (occurrence: US)
  Receive Date: 20190507
  Receipt Date: 20190507
  Transmission Date: 20190711
  Serious: No
  Sender: FDA-Public Use
  Company Number: US-PFIZER INC-2019160995

PATIENT
  Age: 60 Year
  Sex: Male

DRUGS (1)
  1. SUTENT [Suspect]
     Active Substance: SUNITINIB MALATE
     Dosage: 50 MG, 1X/DAY
     Dates: start: 20181221

REACTIONS (12)
  - Ageusia [Unknown]
  - Abdominal pain upper [Unknown]
  - Fatigue [Unknown]
  - Anorectal discomfort [Unknown]
  - Decreased appetite [Unknown]
  - Blood pressure increased [Unknown]
  - Dyspepsia [Unknown]
  - Hair colour changes [Unknown]
  - Dry skin [Unknown]
  - Oral mucosal blistering [Unknown]
  - Dysphagia [Unknown]
  - Wound [Unknown]

NARRATIVE: CASE EVENT DATE: 2018
